FAERS Safety Report 11157929 (Version 2)
Quarter: 2015Q2

REPORT INFORMATION
  Report Type: Report from Study
  Country: GB (occurrence: None)
  Receive Date: 20150601
  Receipt Date: 20150615
  Transmission Date: 20150821
  Serious: Yes (Death, Life-Threatening)
  Sender: FDA-Public Use
  Company Number: 2015GB0286

PATIENT
  Age: 34 Year
  Sex: Male

DRUGS (17)
  1. ITRACONAZOLE. [Concomitant]
     Active Substance: ITRACONAZOLE
  2. FILGRASTIM [Concomitant]
     Active Substance: FILGRASTIM
  3. VITAMIN K (PHYTOMENADIONE) [Concomitant]
  4. LOPERAMIDE [Concomitant]
     Active Substance: LOPERAMIDE
  5. URSODEOXYCHOLIC ACID [Concomitant]
     Active Substance: URSODIOL
  6. ACICLOVIR [Concomitant]
     Active Substance: ACYCLOVIR
  7. ONDANSETRON [Concomitant]
     Active Substance: ONDANSETRON
  8. DIFFLAM (BENZYDAMINE HYDROCHLORIDE) [Concomitant]
  9. ETOPOSIDE. [Concomitant]
     Active Substance: ETOPOSIDE
  10. AMITRIPTYLINE [Concomitant]
     Active Substance: AMITRIPTYLINE
  11. KEPIVANCE [Suspect]
     Active Substance: PALIFERMIN
     Dosage: 4.75 MG (4.75 MG, 1 IN 1 D), INTRAVENOUS
     Route: 042
     Dates: start: 20150421, end: 20150501
  12. CEFTAZIDIME. [Concomitant]
     Active Substance: CEFTAZIDIME
  13. PEGYLATED ASPARAGINASE [Concomitant]
     Active Substance: PEGASPARGASE
  14. SUCRALFATE. [Concomitant]
     Active Substance: SUCRALFATE
  15. METHOTREXATE [Concomitant]
     Active Substance: METHOTREXATE
  16. RANITIDINE [Concomitant]
     Active Substance: RANITIDINE\RANITIDINE HYDROCHLORIDE
  17. DEXAMETHASONE. [Concomitant]
     Active Substance: DEXAMETHASONE

REACTIONS (6)
  - Dialysis [None]
  - Toxic epidermal necrolysis [None]
  - Cardiac arrest [None]
  - Acute kidney injury [None]
  - Sepsis [None]
  - Disseminated intravascular coagulation [None]

NARRATIVE: CASE EVENT DATE: 20150506
